FAERS Safety Report 21678749 (Version 1)
Quarter: 2022Q4

REPORT INFORMATION
  Report Type: Spontaneous
  Country: DE (occurrence: DE)
  Receive Date: 20221204
  Receipt Date: 20221204
  Transmission Date: 20230113
  Serious: Yes (Death, Life-Threatening, Hospitalization, Other)
  Sender: FDA-Public Use
  Company Number: DE-BoehringerIngelheim-2022-BI-205605

PATIENT
  Age: 49 Day
  Sex: Male

DRUGS (13)
  1. CLONIDINE [Suspect]
     Active Substance: CLONIDINE
     Indication: Alcohol withdrawal syndrome
     Dates: start: 20040813, end: 200409
  2. CLONIDINE [Suspect]
     Active Substance: CLONIDINE
     Route: 048
     Dates: start: 200408, end: 200409
  3. ALBUTEROL SULFATE [Suspect]
     Active Substance: ALBUTEROL SULFATE
     Indication: Chronic obstructive pulmonary disease
     Dates: start: 20040813, end: 20040905
  4. SPIRONOLACTONE [Suspect]
     Active Substance: SPIRONOLACTONE
     Indication: Polyuria
     Route: 048
     Dates: start: 20040813, end: 20040905
  5. SPIRONOLACTONE [Suspect]
     Active Substance: SPIRONOLACTONE
     Route: 048
     Dates: start: 200408, end: 200409
  6. AQUAPHOR [Suspect]
     Active Substance: PETROLATUM
     Indication: Hypertension
     Route: 048
     Dates: start: 20040813, end: 20040905
  7. AQUAPHOR [Suspect]
     Active Substance: PETROLATUM
     Route: 048
     Dates: start: 200408, end: 200409
  8. PANTOZOL [Suspect]
     Active Substance: PANTOPRAZOLE SODIUM
     Indication: Prophylaxis
     Route: 048
     Dates: start: 20040813, end: 20040905
  9. ALLOPURINOL [Suspect]
     Active Substance: ALLOPURINOL
     Indication: Hyperuricaemia
     Route: 048
     Dates: start: 20040905, end: 200409
  10. ALBUTEROL SULFATE [Suspect]
     Active Substance: ALBUTEROL SULFATE
     Indication: Chronic obstructive pulmonary disease
     Route: 055
     Dates: start: 20040813, end: 200409
  11. FLUTICASONE PROPIONATE\SALMETEROL XINAFOATE [Suspect]
     Active Substance: FLUTICASONE PROPIONATE\SALMETEROL XINAFOATE
     Indication: Chronic obstructive pulmonary disease
     Route: 055
     Dates: start: 20040816, end: 20040905
  12. DIMETHINDENE [Suspect]
     Active Substance: DIMETHINDENE
     Indication: Rhinitis allergic
     Dates: start: 20040817, end: 20040905
  13. PREDNISONE [Suspect]
     Active Substance: PREDNISONE
     Indication: Rash
     Route: 048
     Dates: start: 20040904, end: 200409

REACTIONS (11)
  - Toxic epidermal necrolysis [Fatal]
  - Lip erosion [Fatal]
  - Mouth ulceration [Fatal]
  - Pruritus [Fatal]
  - Macule [Fatal]
  - Pain of skin [Fatal]
  - Nikolsky^s sign [Fatal]
  - Conjunctivitis [Fatal]
  - Erythema [Fatal]
  - Blister [Fatal]
  - Oral mucosa erosion [Fatal]

NARRATIVE: CASE EVENT DATE: 20040904
